FAERS Safety Report 8478943-1 (Version None)
Quarter: 2012Q2

REPORT INFORMATION
  Report Type: 
  Country: None (occurrence: None)
  Receive Date: 20120629
  Receipt Date: 20120619
  Transmission Date: 20120825
  Serious: Yes (Hospitalization, Disabling, Other)
  Sender: FDA-Public Use
  Company Number: US-MYLANLABS-2009AC000329

PATIENT
  Age: 55 Year
  Sex: Male
  Weight: 81.19 kg

DRUGS (31)
  1. DIGOXIN [Suspect]
     Route: 048
     Dates: start: 20080101, end: 20090101
  2. FLAGYL [Concomitant]
  3. VITAMIN K TAB [Concomitant]
  4. TUSSIONEX /00004701/ [Concomitant]
  5. ATENOLOL [Concomitant]
  6. PROTONIX [Concomitant]
  7. MORPHINE [Concomitant]
  8. ZOFRAN [Concomitant]
  9. ASPIRIN [Concomitant]
  10. LEVAQUIN [Concomitant]
  11. TEMAZEPAM [Concomitant]
  12. DOXYCYCLINE [Concomitant]
  13. SOTALOL HCL [Concomitant]
  14. CORTISONE ACETATE [Concomitant]
  15. AMOXICILLIN [Concomitant]
  16. DIGOXIN [Suspect]
     Route: 048
     Dates: start: 20070221, end: 20070801
  17. DIGOXIN [Suspect]
     Route: 048
     Dates: start: 20060201
  18. CARISOPRODOL [Concomitant]
  19. LEVITRA [Concomitant]
  20. DILTIAZEM HYDROCHOLORIDE [Concomitant]
     Route: 048
  21. PHENERGAN HCL [Concomitant]
  22. PRILOSEC [Concomitant]
  23. AZITHROMYCIN [Concomitant]
  24. DIGOXIN [Suspect]
     Route: 048
     Dates: start: 20060201
  25. ATIVAN [Concomitant]
     Dosage: PRN
     Route: 048
  26. CARDIZEM [Concomitant]
  27. COUMADIN [Concomitant]
     Dosage: 2.5 MG X2 DAYS THEN 5MG FOR ONE DAY - REPEAT SEQUENCE
  28. VIAGRA [Concomitant]
  29. UROXATRAL [Concomitant]
  30. AMBIEN [Concomitant]
  31. CIALIS [Concomitant]

REACTIONS (58)
  - ATRIAL FIBRILLATION [None]
  - URINARY TRACT DISORDER [None]
  - BRONCHITIS [None]
  - FATIGUE [None]
  - NAUSEA [None]
  - FLUSHING [None]
  - BRADYCARDIA [None]
  - CHEST PAIN [None]
  - DEPRESSION [None]
  - ABDOMINAL TENDERNESS [None]
  - ECONOMIC PROBLEM [None]
  - ANXIETY [None]
  - COLONIC POLYP [None]
  - OESOPHAGITIS [None]
  - COLONOSCOPY ABNORMAL [None]
  - CARDIOACTIVE DRUG LEVEL INCREASED [None]
  - ILL-DEFINED DISORDER [None]
  - PYREXIA [None]
  - ARRHYTHMIA [None]
  - SUPRAVENTRICULAR TACHYCARDIA [None]
  - DYSPNOEA [None]
  - DISABILITY [None]
  - ALCOHOL USE [None]
  - WEIGHT DECREASED [None]
  - RHINITIS ALLERGIC [None]
  - TACHYCARDIA [None]
  - TOXICITY TO VARIOUS AGENTS [None]
  - INJURY [None]
  - GALLBLADDER POLYP [None]
  - CHEST X-RAY ABNORMAL [None]
  - EX-TOBACCO USER [None]
  - BENIGN PROSTATIC HYPERPLASIA [None]
  - HEADACHE [None]
  - TOBACCO USER [None]
  - HEPATIC NEOPLASM [None]
  - DIVERTICULUM [None]
  - CHILLS [None]
  - ERECTILE DYSFUNCTION [None]
  - ARRHYTHMIA SUPRAVENTRICULAR [None]
  - COMPUTERISED TOMOGRAM ABNORMAL [None]
  - HIATUS HERNIA [None]
  - DIVERTICULUM INTESTINAL [None]
  - RENAL CYST [None]
  - PROSTATIC SPECIFIC ANTIGEN INCREASED [None]
  - HYPERTENSION [None]
  - CHRONIC OBSTRUCTIVE PULMONARY DISEASE [None]
  - ROTATOR CUFF SYNDROME [None]
  - VITAMIN D DECREASED [None]
  - CONSTIPATION [None]
  - ABDOMINAL DISTENSION [None]
  - ABDOMINAL PAIN UPPER [None]
  - PROSTATOMEGALY [None]
  - PULMONARY MASS [None]
  - PRESYNCOPE [None]
  - INSOMNIA [None]
  - SICK SINUS SYNDROME [None]
  - HYPERLIPIDAEMIA [None]
  - VOMITING [None]
